FAERS Safety Report 5689250-4 (Version None)
Quarter: 2008Q1

REPORT INFORMATION
  Report Type: 
  Country: None (occurrence: None)
  Receive Date: 20080331
  Receipt Date: 20080326
  Transmission Date: 20080703
  Serious: Yes (Death, Other)
  Sender: FDA-Public Use
  Company Number: CA-TEVA-169271USA

PATIENT
  Age: 11 Month
  Sex: Male

DRUGS (2)
  1. METHYLPREDNISOLONE SODIUM SUCCINATE FOR INJECTION, USP 125 MG BASE/VIA [Suspect]
     Indication: GRAFT VERSUS HOST DISEASE
     Dosage: CUMULATIVE DOSAGE 429.3 MG/KG
  2. PREDNISONE [Suspect]
     Indication: GRAFT VERSUS HOST DISEASE

REACTIONS (1)
  - CARDIAC HYPERTROPHY [None]
